FAERS Safety Report 19596703 (Version 2)
Quarter: 2022Q3

REPORT INFORMATION
  Report Type: Report from Study
  Country: US (occurrence: US)
  Receive Date: 20210722
  Receipt Date: 20220818
  Transmission Date: 20221026
  Serious: Yes (Hospitalization)
  Sender: FDA-Public Use
  Company Number: US-ADC THERAPEUTICS-ADC-2021-000106

PATIENT
  Age: 65 Year
  Sex: Male
  Weight: 97.2 kg

DRUGS (1)
  1. ZYNLONTA [Suspect]
     Active Substance: LONCASTUXIMAB TESIRINE-LPYL
     Indication: Diffuse large B-cell lymphoma
     Dosage: 0.15 MILLIGRAM/KILOGRAM, Q3WK
     Route: 042
     Dates: start: 20210630

REACTIONS (1)
  - Mental status changes [Unknown]

NARRATIVE: CASE EVENT DATE: 20210715
